FAERS Safety Report 6306448-2 (Version None)
Quarter: 2009Q3

REPORT INFORMATION
  Report Type: 
  Country: None (occurrence: None)
  Receive Date: 20090812
  Receipt Date: 20090727
  Transmission Date: 20100115
  Serious: No
  Sender: FDA-Public Use
  Company Number: FR-ROCHE-646171

PATIENT
  Age: 3 Month

DRUGS (1)
  1. TAMIFLU [Suspect]
     Indication: PROPHYLAXIS
     Route: 065
     Dates: start: 20090726

REACTIONS (2)
  - CAPSULE ISSUE [None]
  - NO ADVERSE EVENT [None]
